FAERS Safety Report 8838497 (Version 2)
Quarter: 2012Q4

REPORT INFORMATION
  Report Type: 
  Country: US (occurrence: US)
  Receive Date: 20121012
  Receipt Date: 20121212
  Transmission Date: 20130627
  Serious: Yes (Hospitalization, Other)
  Sender: FDA-Public Use
  Company Number: US-ROCHE-1027772

PATIENT
  Sex: Female
  Weight: 57.2 kg

DRUGS (5)
  1. ACCUTANE [Suspect]
     Indication: ACNE
     Route: 065
     Dates: start: 200212, end: 20030122
  2. ACCUTANE [Suspect]
     Route: 065
     Dates: start: 20030218, end: 20030610
  3. DEPO-PROVERA [Concomitant]
     Indication: CONTRACEPTION
  4. ORAL CONTRACEPTIVE NOS [Concomitant]
     Indication: CONTRACEPTION
  5. BIRTH CONTROL PATCH (UNK INGREDIENTS) [Concomitant]
     Indication: CONTRACEPTION

REACTIONS (7)
  - Crohn^s disease [Unknown]
  - Colitis ulcerative [Unknown]
  - Inflammatory bowel disease [Unknown]
  - Depression [Unknown]
  - Mental disorder [Unknown]
  - Suicidal ideation [Unknown]
  - Bipolar disorder [Unknown]
